FAERS Safety Report 10222836 (Version 1)
Quarter: 2014Q2

REPORT INFORMATION
  Report Type: Spontaneous
  Country: US (occurrence: None)
  Receive Date: 20140606
  Receipt Date: 20140606
  Transmission Date: 20141212
  Serious: Yes (Other)
  Sender: FDA-Public Use
  Company Number: None

PATIENT
  Age: 66 Year
  Sex: Male
  Weight: 120.9 kg

DRUGS (1)
  1. FLUNISOLIDE [Suspect]
     Dates: start: 20121011, end: 20131012

REACTIONS (2)
  - Treatment failure [None]
  - Therapeutic response decreased [None]
